FAERS Safety Report 12796307 (Version 1)
Quarter: 2016Q3

REPORT INFORMATION
  Report Type: Spontaneous
  Country: IT (occurrence: IT)
  Receive Date: 20160929
  Receipt Date: 20160929
  Transmission Date: 20161109
  Serious: Yes (Hospitalization)
  Sender: FDA-Public Use
  Company Number: IT-009507513-1609ITA009146

PATIENT
  Age: 72 Year
  Sex: Male

DRUGS (8)
  1. SINEMET [Suspect]
     Active Substance: CARBIDOPA\LEVODOPA
     Indication: PARKINSON^S DISEASE
     Dosage: DAILY DOSE: 5.25 DF, QD
     Route: 048
     Dates: start: 20150101, end: 20160909
  2. SINEMET [Suspect]
     Active Substance: CARBIDOPA\LEVODOPA
     Dosage: DAILY DOSE: 5 DF, QD
     Route: 048
     Dates: start: 20160909
  3. MIRAPEXIN [Suspect]
     Active Substance: PRAMIPEXOLE
     Indication: PARKINSON^S DISEASE
     Dosage: DAILY DOSE: 1 DF, QD
     Route: 048
     Dates: start: 20150101, end: 20160909
  4. MIRAPEXIN [Suspect]
     Active Substance: PRAMIPEXOLE
     Dosage: DAILY DOSE: 1.5 DF, QD
     Route: 048
     Dates: start: 20160909
  5. LANSOX [Concomitant]
     Active Substance: LANSOPRAZOLE
  6. VOLTAREN [Concomitant]
     Active Substance: DICLOFENAC SODIUM
  7. SAFINAMIDE [Concomitant]
     Active Substance: SAFINAMIDE
  8. LYRICA [Concomitant]
     Active Substance: PREGABALIN

REACTIONS (4)
  - Dyskinesia [Recovering/Resolving]
  - Irritability [Recovering/Resolving]
  - Abnormal behaviour [Recovering/Resolving]
  - Oedema peripheral [Recovering/Resolving]

NARRATIVE: CASE EVENT DATE: 20160908
